FAERS Safety Report 8089007-3 (Version None)
Quarter: 2012Q1

REPORT INFORMATION
  Report Type: 
  Country: None (occurrence: None)
  Receive Date: 20120128
  Receipt Date: 20110720
  Transmission Date: 20120608
  Serious: No
  Sender: FDA-Public Use
  Company Number: US-ABBOTT-10P-163-0694239-00

PATIENT
  Sex: Female
  Weight: 59.02 kg

DRUGS (9)
  1. HUMIRA [Suspect]
     Indication: RHEUMATOID ARTHRITIS
     Dates: start: 20100901
  2. AMBIEN [Concomitant]
     Indication: SLEEP DISORDER
     Dosage: QHS
  3. KEPPRA [Concomitant]
     Indication: CONVULSION
     Dosage: BID
  4. LYRICA [Concomitant]
     Indication: PRODUCT USED FOR UNKNOWN INDICATION
  5. SINGULAIR [Concomitant]
     Indication: HYPERSENSITIVITY
  6. KLONOPIN [Concomitant]
     Indication: CONVULSION
  7. NEXIUM [Concomitant]
     Indication: PRODUCT USED FOR UNKNOWN INDICATION
     Dosage: DAILY
  8. LEXAPRO [Concomitant]
     Indication: DEPRESSION
  9. PREMARIN [Concomitant]
     Indication: HORMONE REPLACEMENT THERAPY

REACTIONS (8)
  - ARTHRALGIA [None]
  - JOINT SWELLING [None]
  - INSOMNIA [None]
  - DRUG DOSE OMISSION [None]
  - GASTROOESOPHAGEAL REFLUX DISEASE [None]
  - DRUG INEFFECTIVE [None]
  - DEVICE MALFUNCTION [None]
  - ARTHRITIS [None]
